FAERS Safety Report 13414761 (Version 2)
Quarter: 2017Q2

REPORT INFORMATION
  Report Type: Spontaneous
  Country: BG (occurrence: BG)
  Receive Date: 20170407
  Receipt Date: 20170427
  Transmission Date: 20170830
  Serious: Yes (Other)
  Sender: FDA-Public Use
  Company Number: BG-BAYER-2017-060852

PATIENT
  Age: 70 Year
  Sex: Male

DRUGS (1)
  1. NEXAVAR [Suspect]
     Active Substance: SORAFENIB
     Indication: CLEAR CELL RENAL CELL CARCINOMA
     Dosage: UNK
     Dates: end: 201606

REACTIONS (3)
  - Nail dystrophy [Recovered/Resolved]
  - Onychoclasis [Recovered/Resolved]
  - Metastases to central nervous system [None]

NARRATIVE: CASE EVENT DATE: 201606
